FAERS Safety Report 13145339 (Version 11)
Quarter: 2024Q3

REPORT INFORMATION
  Report Type: Report from Study
  Country: CA (occurrence: CA)
  Receive Date: 20170124
  Receipt Date: 20240906
  Transmission Date: 20241017
  Serious: Yes (Other)
  Sender: NOVARTIS
  Company Number: PHHY2016CA180092

PATIENT
  Age: 57 Year
  Sex: Male

DRUGS (5)
  1. COSENTYX [Suspect]
     Active Substance: SECUKINUMAB
     Indication: Ankylosing spondylitis
     Dosage: 150 MG, QMO
     Route: 058
     Dates: start: 20161117, end: 20161208
  2. COSENTYX [Suspect]
     Active Substance: SECUKINUMAB
     Dosage: 150 MG, QMO (INJECTION NOS)
     Route: 050
     Dates: start: 201612
  3. COSENTYX [Suspect]
     Active Substance: SECUKINUMAB
     Dosage: 150 MG, Q2W
     Route: 058
  4. INDOMETHACIN [Concomitant]
     Active Substance: INDOMETHACIN
     Indication: Product used for unknown indication
     Dosage: UNK, TID
     Route: 065
     Dates: start: 19880101
  5. HYDROMORPHONE [Concomitant]
     Active Substance: HYDROMORPHONE
     Indication: Product used for unknown indication
     Dosage: 1 DF, TID
     Route: 048

REACTIONS (16)
  - Multiple sclerosis [Unknown]
  - Ankylosing spondylitis [Unknown]
  - Pain [Unknown]
  - Malaise [Unknown]
  - Fatigue [Unknown]
  - Arthralgia [Unknown]
  - Neck pain [Unknown]
  - Back pain [Unknown]
  - Joint swelling [Unknown]
  - Discomfort [Unknown]
  - Musculoskeletal stiffness [Unknown]
  - Arthropathy [Unknown]
  - Product dose omission issue [Unknown]
  - Inappropriate schedule of product administration [Unknown]
  - Therapeutic response decreased [Unknown]
  - Product supply issue [Unknown]

NARRATIVE: CASE EVENT DATE: 20161201
